FAERS Safety Report 17790434 (Version 1)
Quarter: 2020Q2

REPORT INFORMATION
  Report Type: Spontaneous
  Country: US (occurrence: US)
  Receive Date: 20200514
  Receipt Date: 20200514
  Transmission Date: 20200714
  Serious: Yes (Hospitalization)
  Sender: FDA-Public Use
  Company Number: US-009507513-2005USA003341

PATIENT
  Age: 66 Year
  Sex: Female

DRUGS (4)
  1. JANUVIA [Suspect]
     Active Substance: SITAGLIPTIN PHOSPHATE
     Indication: BLOOD GLUCOSE
     Dosage: 100 MILLIGRAM, QD
     Route: 048
     Dates: start: 201811, end: 20200501
  2. LOVASTATIN. [Concomitant]
     Active Substance: LOVASTATIN
  3. GLYBURIDE. [Concomitant]
     Active Substance: GLYBURIDE
  4. PRINIVIL [Concomitant]
     Active Substance: LISINOPRIL

REACTIONS (2)
  - Blood glucose increased [Recovered/Resolved]
  - Hysterectomy [Recovered/Resolved]

NARRATIVE: CASE EVENT DATE: 202003
